FAERS Safety Report 21083472 (Version 1)
Quarter: 2022Q3

REPORT INFORMATION
  Report Type: Spontaneous
  Country: US (occurrence: US)
  Receive Date: 20220714
  Receipt Date: 20220714
  Transmission Date: 20221026
  Serious: No
  Sender: FDA-Public Use
  Company Number: US-BRISTOL-MYERS SQUIBB COMPANY-2022-074102

PATIENT
  Age: 78 Year
  Sex: Male
  Weight: 53.52 kg

DRUGS (5)
  1. REVLIMID [Suspect]
     Active Substance: LENALIDOMIDE
     Indication: Plasma cell myeloma
     Route: 048
     Dates: start: 20200203
  2. PREZAR [LOSARTAN] [Concomitant]
     Indication: Product used for unknown indication
     Route: 065
  3. ASPIRIN BP [Concomitant]
     Indication: Product used for unknown indication
     Route: 065
  4. AGNA [GABAPENTIN] [Concomitant]
     Indication: Product used for unknown indication
     Route: 065
  5. AGNA [GABAPENTIN] [Concomitant]
     Indication: Product used for unknown indication
     Route: 065

REACTIONS (2)
  - Rash [Unknown]
  - Pruritus [Unknown]

NARRATIVE: CASE EVENT DATE: 20220713
